FAERS Safety Report 5050515-0 (Version None)
Quarter: 2006Q3

REPORT INFORMATION
  Report Type: 
  Country: None (occurrence: None)
  Receive Date: 20060707
  Receipt Date: 20060619
  Transmission Date: 20061208
  Serious: Yes (Death)
  Sender: FDA-Public Use
  Company Number: S06-FRA-02604-01

PATIENT
  Age: 69 Year
  Sex: Male

DRUGS (8)
  1. SEROPLEX (ESCITALOPRAM) [Suspect]
     Indication: ANTIDEPRESSANT THERAPY
     Dosage: 10 MG QD PO
     Route: 048
     Dates: start: 20060222, end: 20060515
  2. GLUCOPHAGE [Suspect]
     Dosage: 1700 MG QD PO
     Route: 048
     Dates: end: 20060523
  3. TERCIAN (CYAMEMAZINE) [Suspect]
     Dosage: 0.5 UNITS BID PO
     Route: 048
     Dates: start: 20060516, end: 20060523
  4. ATORVASTATIN CALCIUM [Suspect]
     Dosage: 40 MG QD PO
     Route: 048
     Dates: end: 20060523
  5. INEXIUM (ESOMEPRAZOLE) [Suspect]
     Dosage: 20 MG QD PO
     Route: 048
     Dates: start: 20060222, end: 20060523
  6. RAMIPRIL [Suspect]
     Dosage: 1.25 MG BID PO
     Route: 048
     Dates: end: 20060523
  7. ASPIRIN [Suspect]
     Dosage: 75 MG QD PO
     Route: 048
     Dates: end: 20060523
  8. LASIX [Suspect]
     Dosage: 40 MG QD PO
     Route: 048
     Dates: end: 20060523

REACTIONS (4)
  - COMPLETED SUICIDE [None]
  - INJURY ASPHYXIATION [None]
  - INTENTIONAL SELF-INJURY [None]
  - PARANOIA [None]
